FAERS Safety Report 8072227-1 (Version None)
Quarter: 2012Q1

REPORT INFORMATION
  Report Type: 
  Country: None (occurrence: None)
  Receive Date: 20120126
  Receipt Date: 20120120
  Transmission Date: 20120608
  Serious: No
  Sender: FDA-Public Use
  Company Number: US-PFIZER INC-2012017045

PATIENT

DRUGS (3)
  1. GOLYTELY [Concomitant]
     Dosage: (236-22.74-6.74 GRAM ORAL SUSPENSION, TAKE BY MOUTH)
     Route: 048
  2. VIAGRA [Suspect]
     Dosage: 100 MG, (TAKE 1 TABLET BY MOUTH AS NEEDED, TAKE 30-60 MINUTES BEFORE SEXUAL INTERCOURSE AS NEEDED)
     Route: 048
  3. ATENOLOL [Concomitant]
     Dosage: 25 MG, 1X/DAY
     Route: 048

REACTIONS (2)
  - POST-TRAUMATIC HEADACHE [None]
  - MIGRAINE WITHOUT AURA [None]
